FAERS Safety Report 5154179-7 (Version None)
Quarter: 2006Q4

REPORT INFORMATION
  Report Type: 
  Country: None (occurrence: None)
  Receive Date: 20061120
  Receipt Date: 20061115
  Transmission Date: 20070319
  Serious: Yes (Hospitalization)
  Sender: FDA-Public Use
  Company Number: 2006UW24662

PATIENT
  Age: 41 Year
  Sex: Male

DRUGS (5)
  1. SEROQUEL [Suspect]
     Indication: BIPOLAR DISORDER
     Route: 048
  2. SEROQUEL [Suspect]
     Route: 048
  3. GLUCOFAGE [Concomitant]
  4. BYETTA [Concomitant]
  5. ALTACE [Concomitant]

REACTIONS (2)
  - FEELING JITTERY [None]
  - UNEVALUABLE EVENT [None]
